FAERS Safety Report 17930507 (Version 2)
Quarter: 2020Q4

REPORT INFORMATION
  Report Type: Spontaneous
  Country: US (occurrence: US)
  Receive Date: 20200623
  Receipt Date: 20201204
  Transmission Date: 20210113
  Serious: No
  Sender: FDA-Public Use
  Company Number: US-GLAXOSMITHKLINE-US2020102183

PATIENT
  Age: 67 Year
  Sex: Female

DRUGS (1)
  1. NICODERM CQ [Suspect]
     Active Substance: NICOTINE
     Indication: PRODUCT USED FOR UNKNOWN INDICATION
     Dosage: UNK
     Dates: start: 20200614, end: 20200615

REACTIONS (4)
  - Dizziness [Recovering/Resolving]
  - Asthenia [Unknown]
  - Accidental exposure to product [Unknown]
  - Nausea [Unknown]

NARRATIVE: CASE EVENT DATE: 20200615
